FAERS Safety Report 6371036-9 (Version None)
Quarter: 2009Q3

REPORT INFORMATION
  Report Type: 
  Country: None (occurrence: None)
  Receive Date: 20090921
  Receipt Date: 20090921
  Transmission Date: 20100115
  Serious: No
  Sender: FDA-Public Use
  Company Number: None

PATIENT
  Age: 51 Year
  Sex: Male
  Weight: 102.5 kg

DRUGS (2)
  1. OLANZAPINE [Suspect]
     Indication: MAJOR DEPRESSION
     Dosage: 10 MG HS PO
     Route: 048
     Dates: start: 20090702, end: 20090804
  2. QUETIAPINE FUMARATE [Suspect]
     Indication: MAJOR DEPRESSION
     Dosage: 100 MG HS PO
     Route: 048
     Dates: start: 20090626, end: 20090702

REACTIONS (2)
  - LIVER FUNCTION TEST ABNORMAL [None]
  - WEIGHT INCREASED [None]
